FAERS Safety Report 9800736 (Version 1)
Quarter: 2014Q1

REPORT INFORMATION
  Report Type: Spontaneous
  Country: US (occurrence: US)
  Receive Date: 20140107
  Receipt Date: 20140107
  Transmission Date: 20141002
  Serious: No
  Sender: FDA-Public Use
  Company Number: US-PFIZER INC-2014002459

PATIENT
  Age: 58 Year
  Sex: Female
  Weight: 58.96 kg

DRUGS (7)
  1. ZYVOX [Suspect]
     Indication: STAPHYLOCOCCAL INFECTION
     Dosage: 600 MG, 2X/DAY
     Route: 048
     Dates: start: 201205, end: 2012
  2. OXYCODONE [Concomitant]
     Indication: PAIN
     Dosage: UNK, AS NEEDED
  3. IBUPROFEN [Concomitant]
     Dosage: UNK, 1X/DAY
  4. TYLENOL PM [Concomitant]
     Indication: SLEEP DISORDER
     Dosage: UNK
  5. TYLENOL PM [Concomitant]
     Indication: SINUS DISORDER
  6. CLONAZEPAM [Concomitant]
     Indication: ANXIETY
     Dosage: UNK, AS NEEDED
  7. METOPROLOL [Concomitant]
     Dosage: 12.5 MG, 1X/DAY

REACTIONS (3)
  - Diarrhoea [Recovered/Resolved]
  - Dizziness [Recovered/Resolved]
  - Nausea [Recovered/Resolved]
